FAERS Safety Report 4984993-X (Version None)
Quarter: 2006Q2

REPORT INFORMATION
  Report Type: 
  Country: None (occurrence: None)
  Receive Date: 20060426
  Receipt Date: 20060426
  Transmission Date: 20061013
  Serious: No
  Sender: FDA-Public Use
  Company Number: None

PATIENT
  Age: 25 Year
  Sex: Female

DRUGS (1)
  1. ZYBAN [Suspect]
     Dosage: ORAL;;0,0
     Route: 048
     Dates: start: 20060207, end: 20060221

REACTIONS (3)
  - DRY MOUTH [None]
  - SLEEP DISORDER [None]
  - TINNITUS [None]
